FAERS Safety Report 9797509 (Version 1)
Quarter: 2014Q1

REPORT INFORMATION
  Report Type: Spontaneous
  Country: JP (occurrence: JP)
  Receive Date: 20140106
  Receipt Date: 20140106
  Transmission Date: 20141002
  Serious: Yes (Other)
  Sender: FDA-Public Use
  Company Number: PHHY2013JP152746

PATIENT
  Sex: Male

DRUGS (1)
  1. ZOMETA [Suspect]
     Dosage: 04 MG, PER ADMINISTRATION
     Route: 041
     Dates: start: 20131223

REACTIONS (3)
  - Altered state of consciousness [Unknown]
  - Pyrexia [Unknown]
  - Vomiting [Unknown]
